FAERS Safety Report 17080476 (Version 3)
Quarter: 2020Q2

REPORT INFORMATION
  Report Type: Report from Study
  Country: US (occurrence: US)
  Receive Date: 20191127
  Receipt Date: 20200521
  Transmission Date: 20200713
  Serious: Yes (Other)
  Sender: FDA-Public Use
  Company Number: PHHY2018US159272

PATIENT
  Age: 55 Year
  Sex: Female

DRUGS (1)
  1. GILENYA [Suspect]
     Active Substance: FINGOLIMOD HYDROCHLORIDE
     Indication: MULTIPLE SCLEROSIS
     Dosage: UNK, QD
     Route: 065

REACTIONS (21)
  - Pneumonia [Recovered/Resolved]
  - Pain [Unknown]
  - Vitreous detachment [Not Recovered/Not Resolved]
  - Paraesthesia [Recovered/Resolved]
  - Vitreous floaters [Not Recovered/Not Resolved]
  - Hypoaesthesia [Recovered/Resolved]
  - Pain in extremity [Recovered/Resolved]
  - Musculoskeletal pain [Recovered/Resolved]
  - Thyroid mass [Not Recovered/Not Resolved]
  - JC polyomavirus test positive [Not Recovered/Not Resolved]
  - Blood alkaline phosphatase increased [Unknown]
  - Urinary tract infection [Recovered/Resolved]
  - Lymphocyte count decreased [Unknown]
  - Temperature intolerance [Recovered/Resolved]
  - Cellulitis [Recovered/Resolved]
  - Fatigue [Recovered/Resolved]
  - Fibrous histiocytoma [Not Recovered/Not Resolved]
  - Joint range of motion decreased [Recovered/Resolved]
  - Presbyopia [Not Recovered/Not Resolved]
  - Fatigue [Not Recovered/Not Resolved]
  - Haemangioma of skin [Not Recovered/Not Resolved]

NARRATIVE: CASE EVENT DATE: 20180304
